FAERS Safety Report 7586862-8 (Version None)
Quarter: 2011Q3

REPORT INFORMATION
  Report Type: 
  Country: None (occurrence: None)
  Receive Date: 20110701
  Receipt Date: 20110620
  Transmission Date: 20111222
  Serious: Yes (Hospitalization, Disabling)
  Sender: FDA-Public Use
  Company Number: DE-GENENTECH-319518

PATIENT
  Sex: Male
  Weight: 72 kg

DRUGS (3)
  1. BENDAMUSTINE [Suspect]
     Indication: CHRONIC LYMPHOCYTIC LEUKAEMIA
     Dosage: 176 MG, UNK
     Route: 042
     Dates: start: 20100511, end: 20100512
  2. RITUXAN [Suspect]
     Indication: CHRONIC LYMPHOCYTIC LEUKAEMIA
     Dosage: 740 MG, X1
     Route: 042
     Dates: start: 20100510, end: 20100510
  3. FENISTIL (DIMETINDENE MALEATE) [Concomitant]
     Indication: PREMEDICATION
     Dosage: 1 MG, UNK
     Route: 042
     Dates: start: 20100510, end: 20100510

REACTIONS (2)
  - DEPRESSION [None]
  - CHRONIC OBSTRUCTIVE PULMONARY DISEASE [None]
